FAERS Safety Report 4561068-5 (Version None)
Quarter: 2005Q1

REPORT INFORMATION
  Report Type: 
  Country: None (occurrence: None)
  Receive Date: 20050126
  Receipt Date: 20041027
  Transmission Date: 20050727
  Serious: No
  Sender: FDA-Public Use
  Company Number: US-BRISTOL-MYERS SQUIBB COMPANY-12746905

PATIENT
  Age: 34 Year
  Sex: Female
  Weight: 121 kg

DRUGS (3)
  1. GLUCOPHAGE [Suspect]
     Indication: INFERTILITY
     Route: 048
     Dates: start: 20030901
  2. CLOMID [Concomitant]
  3. PRENATAL VITAMINS [Concomitant]
     Dates: start: 20030901, end: 20040301

REACTIONS (2)
  - GESTATIONAL DIABETES [None]
  - PREGNANCY [None]
